FAERS Safety Report 18110162 (Version 2)
Quarter: 2020Q3

REPORT INFORMATION
  Report Type: Spontaneous
  Country: IE (occurrence: IE)
  Receive Date: 20200804
  Receipt Date: 20200814
  Transmission Date: 20201103
  Serious: Yes (Hospitalization, Other)
  Sender: FDA-Public Use
  Company Number: IE-ELI_LILLY_AND_COMPANY-IE202007010781

PATIENT
  Age: 57 Year
  Sex: Female

DRUGS (10)
  1. TRIFLUOPERAZINE [Concomitant]
     Active Substance: TRIFLUOPERAZINE HYDROCHLORIDE
     Indication: SCHIZOAFFECTIVE DISORDER
     Dosage: UNK, UNKNOWN
     Route: 065
  2. OLANZAPINE. [Suspect]
     Active Substance: OLANZAPINE
     Indication: SCHIZOAFFECTIVE DISORDER
     Dosage: 25 MG, EACH EVENING
     Route: 065
  3. DOSULEPIN HYDROCHLORIDE [Concomitant]
     Active Substance: DOTHIEPIN HYDROCHLORIDE
     Indication: SCHIZOAFFECTIVE DISORDER
     Dosage: 150 MG, EACH EVENING
     Route: 065
  4. FLUPENTHIXOL [FLUPENTIXOL DECANOATE] [Suspect]
     Active Substance: FLUPENTIXOL DECANOATE
     Indication: SCHIZOAFFECTIVE DISORDER
     Dosage: 40 MILLIGRAM, EVERY 2 WEEKS
     Route: 030
     Dates: end: 201409
  5. LOFEPRAMINE [Concomitant]
     Active Substance: LOFEPRAMINE
     Indication: SCHIZOAFFECTIVE DISORDER
     Dosage: UNK, UNKNOWN
     Route: 065
  6. CLOZAPINE. [Concomitant]
     Active Substance: CLOZAPINE
     Indication: SCHIZOAFFECTIVE DISORDER
     Dosage: INCREASED OVER THE COURSE OF 6 WEEKS TO 350 MG/DAY, UNKNOWN
     Route: 065
     Dates: start: 201409
  7. BUSPIRONE [Concomitant]
     Active Substance: BUSPIRONE HYDROCHLORIDE
     Indication: SCHIZOAFFECTIVE DISORDER
     Dosage: UNK, UNKNOWN
     Route: 065
  8. OLANZAPINE. [Suspect]
     Active Substance: OLANZAPINE
     Dosage: 20 MG, EACH EVENING
     Route: 065
     Dates: end: 201409
  9. PIMOZIDE. [Concomitant]
     Active Substance: PIMOZIDE
     Indication: SCHIZOAFFECTIVE DISORDER
     Dosage: UNK, UNKNOWN
     Route: 065
  10. SULPIRIDE [Concomitant]
     Active Substance: SULPIRIDE
     Indication: SCHIZOAFFECTIVE DISORDER
     Dosage: UNK, UNKNOWN
     Route: 065

REACTIONS (10)
  - Social avoidant behaviour [Recovered/Resolved]
  - Condition aggravated [Recovered/Resolved]
  - Symptom recurrence [Recovered/Resolved]
  - Poverty of speech [Recovered/Resolved]
  - Apathy [Recovered/Resolved]
  - Dystonia [Unknown]
  - Parkinsonism [Unknown]
  - Depressed mood [Recovered/Resolved]
  - Therapy non-responder [Unknown]
  - Persecutory delusion [Recovered/Resolved]
